FAERS Safety Report 17193258 (Version 1)
Quarter: 2019Q4

REPORT INFORMATION
  Report Type: Spontaneous
  Country: FR (occurrence: FR)
  Receive Date: 20191223
  Receipt Date: 20191223
  Transmission Date: 20200122
  Serious: Yes (Life-Threatening, Hospitalization)
  Sender: FDA-Public Use
  Company Number: FR-IPSEN BIOPHARMACEUTICALS, INC.-2019-25215

PATIENT
  Age: 58 Year
  Sex: Male
  Weight: 85 kg

DRUGS (2)
  1. SOMATULINE [Suspect]
     Active Substance: LANREOTIDE ACETATE
     Indication: NEUROENDOCRINE TUMOUR
     Route: 048
     Dates: start: 2016
  2. EVEROLIMUS. [Suspect]
     Active Substance: EVEROLIMUS
     Indication: NEUROENDOCRINE TUMOUR
     Route: 048
     Dates: start: 201812, end: 20190814

REACTIONS (2)
  - Diffuse large B-cell lymphoma [Recovering/Resolving]
  - Incorrect route of product administration [Unknown]

NARRATIVE: CASE EVENT DATE: 201907
